FAERS Safety Report 8902678 (Version 4)
Quarter: 2012Q4

REPORT INFORMATION
  Report Type: Report from Study
  Country: US (occurrence: US)
  Receive Date: 20121112
  Receipt Date: 20121204
  Transmission Date: 20130627
  Serious: No
  Sender: FDA-Public Use
  Company Number: US-NOVOPROD-362787

PATIENT
  Age: 56 Year
  Sex: Female
  Weight: 36.4 kg

DRUGS (3)
  1. LIRAGLUTIDE FLEXPEN [Suspect]
     Indication: OBESITY
     Dosage: 2.4 mg, qd
     Route: 058
     Dates: start: 20120916, end: 20121017
  2. LIRAGLUTIDE FLEXPEN [Suspect]
     Indication: SLEEP APNOEA SYNDROME
  3. PROZAC [Concomitant]
     Dosage: UNK
     Dates: start: 2006

REACTIONS (1)
  - Depression [Not Recovered/Not Resolved]
